FAERS Safety Report 10656666 (Version 3)
Quarter: 2015Q1

REPORT INFORMATION
  Report Type: Spontaneous
  Country: US (occurrence: US)
  Receive Date: 20141216
  Receipt Date: 20150227
  Transmission Date: 20150720
  Serious: Yes (Hospitalization, Other)
  Sender: FDA-Public Use
  Company Number: US-AMGEN-USASP2014097001

PATIENT
  Age: 60 Year
  Sex: Male

DRUGS (3)
  1. WARFARIN [Concomitant]
     Active Substance: WARFARIN
     Dosage: UNK
  2. ENBREL [Suspect]
     Active Substance: ETANERCEPT
     Indication: PSORIASIS
     Dosage: 50 MG, 2 TIMES/WK
     Route: 065
     Dates: start: 201312, end: 20150203
  3. CLOBETASOL [Concomitant]
     Active Substance: CLOBETASOL
     Dosage: UNK

REACTIONS (16)
  - Wrist fracture [Recovered/Resolved]
  - Transient ischaemic attack [Recovered/Resolved]
  - Limb injury [Recovered/Resolved]
  - Drug ineffective [Recovered/Resolved]
  - Impaired healing [Recovered/Resolved]
  - Memory impairment [Recovered/Resolved]
  - Pain [Not Recovered/Not Resolved]
  - Contusion [Recovered/Resolved]
  - Urticaria [Not Recovered/Not Resolved]
  - Gait disturbance [Not Recovered/Not Resolved]
  - Rash erythematous [Recovered/Resolved]
  - International normalised ratio abnormal [Recovered/Resolved]
  - Feeding disorder [Unknown]
  - Fall [Recovered/Resolved]
  - Psoriasis [Recovered/Resolved]
  - Skin reaction [Not Recovered/Not Resolved]

NARRATIVE: CASE EVENT DATE: 2014
